FAERS Safety Report 9780886 (Version 2)
Quarter: 2013Q4

REPORT INFORMATION
  Report Type: Spontaneous
  Country: US (occurrence: US)
  Receive Date: 20131224
  Receipt Date: 20131227
  Transmission Date: 20140711
  Serious: Yes (Other)
  Sender: FDA-Public Use
  Company Number: US-DRREDDYS-USA/USA/13/0036593

PATIENT
  Age: 19 Year
  Sex: Male

DRUGS (1)
  1. ZENATANE [Suspect]
     Indication: ACNE
     Route: 065
     Dates: start: 20131017, end: 20131217

REACTIONS (3)
  - Depression [Recovering/Resolving]
  - Insomnia [Recovering/Resolving]
  - Decreased appetite [Recovering/Resolving]
